FAERS Safety Report 18046788 (Version 2)
Quarter: 2020Q3

REPORT INFORMATION
  Report Type: Spontaneous
  Country: US (occurrence: US)
  Receive Date: 20200720
  Receipt Date: 20200828
  Transmission Date: 20201103
  Serious: No
  Sender: FDA-Public Use
  Company Number: US-LEXICON PHARMACEUTICALS, INC-20-1606-00573

PATIENT
  Age: 68 Year
  Sex: Male

DRUGS (3)
  1. SOMATULINE [Concomitant]
     Active Substance: LANREOTIDE ACETATE
     Dosage: DOSE AND REGIMEN = UNKNOWN
  2. XERMELO [Suspect]
     Active Substance: TELOTRISTAT ETHYL
     Indication: CARCINOID TUMOUR OF THE SMALL BOWEL
     Dates: start: 20190306
  3. XERMELO [Suspect]
     Active Substance: TELOTRISTAT ETHYL

REACTIONS (1)
  - Treatment noncompliance [Unknown]
